FAERS Safety Report 15796109 (Version 1)
Quarter: 2019Q1

REPORT INFORMATION
  Report Type: Spontaneous
  Country: US (occurrence: US)
  Receive Date: 20190108
  Receipt Date: 20190108
  Transmission Date: 20190417
  Serious: No
  Sender: FDA-Public Use
  Company Number: US-009507513-1812USA006919

PATIENT
  Age: 24 Year
  Sex: Female
  Weight: 92.06 kg

DRUGS (1)
  1. NEXPLANON [Suspect]
     Active Substance: ETONOGESTREL
     Dosage: ONE IMPLANT (68 MG), UNKNOWN
     Route: 059
     Dates: start: 201802

REACTIONS (4)
  - Complication of device removal [Not Recovered/Not Resolved]
  - Adverse event [Unknown]
  - Implant site fibrosis [Not Recovered/Not Resolved]
  - Complication associated with device [Not Recovered/Not Resolved]

NARRATIVE: CASE EVENT DATE: 2018
